FAERS Safety Report 6623696-2 (Version None)
Quarter: 2010Q1

REPORT INFORMATION
  Report Type: 
  Country: None (occurrence: None)
  Receive Date: 20100304
  Receipt Date: 20100224
  Transmission Date: 20100710
  Serious: Yes (Hospitalization)
  Sender: FDA-Public Use
  Company Number: TCI2010A00638

PATIENT
  Age: 78 Year
  Sex: Female

DRUGS (1)
  1. LANSOPRAZOLE [Suspect]
     Dosage: PER ORAL
     Route: 048

REACTIONS (3)
  - COLITIS COLLAGENOUS [None]
  - LARGE INTESTINAL ULCER HAEMORRHAGE [None]
  - SCAR [None]
